FAERS Safety Report 19760643 (Version 1)
Quarter: 2021Q3

REPORT INFORMATION
  Report Type: Spontaneous
  Country: US (occurrence: US)
  Receive Date: 20210826
  Receipt Date: 20210826
  Transmission Date: 20211014
  Serious: No
  Sender: FDA-Public Use
  Company Number: None

PATIENT

DRUGS (2)
  1. AMLODIPINE [Suspect]
     Active Substance: AMLODIPINE BESYLATE
     Route: 048
  2. TERBINAFINE. [Suspect]
     Active Substance: TERBINAFINE
     Route: 048

REACTIONS (6)
  - Product size issue [None]
  - Product design issue [None]
  - Product colour issue [None]
  - Product label confusion [None]
  - Product packaging confusion [None]
  - Product appearance confusion [None]
